FAERS Safety Report 12901930 (Version 2)
Quarter: 2016Q4

REPORT INFORMATION
  Report Type: Spontaneous
  Country: IT (occurrence: IT)
  Receive Date: 20161102
  Receipt Date: 20161228
  Transmission Date: 20170207
  Serious: Yes (Other)
  Sender: FDA-Public Use
  Company Number: IT-SUN PHARMACEUTICAL INDUSTRIES LTD-2016R1-126662

PATIENT
  Age: 18 Year
  Sex: Female

DRUGS (3)
  1. AMIODARONE [Suspect]
     Active Substance: AMIODARONE
     Indication: SUPRAVENTRICULAR TACHYCARDIA
     Dosage: UNK
     Route: 065
  2. VERAPAMIL [Suspect]
     Active Substance: VERAPAMIL HYDROCHLORIDE
     Indication: SUPRAVENTRICULAR TACHYCARDIA
     Dosage: 5 MG
     Route: 042
  3. FLECAINIDE [Suspect]
     Active Substance: FLECAINIDE
     Indication: SUPRAVENTRICULAR TACHYCARDIA
     Dosage: UNK
     Route: 042

REACTIONS (1)
  - Drug resistance [Unknown]
